FAERS Safety Report 5635780-0 (Version None)
Quarter: 2008Q1

REPORT INFORMATION
  Report Type: 
  Country: None (occurrence: None)
  Receive Date: 20080221
  Receipt Date: 20080213
  Transmission Date: 20080703
  Serious: Yes (Death, Other)
  Sender: FDA-Public Use
  Company Number: 056-21880-08020865

PATIENT
  Age: 50 Year
  Sex: Female

DRUGS (2)
  1. REVLIMID [Suspect]
     Indication: MYELODYSPLASTIC SYNDROME
     Dosage: 5 MG, DAILY; ORAL, 10 MG, DAILY X3 WEEKS EVERY MONTH; ORAL
     Route: 048
     Dates: start: 20060101
  2. REVLIMID [Suspect]
     Indication: MYELODYSPLASTIC SYNDROME
     Dosage: 5 MG, DAILY; ORAL, 10 MG, DAILY X3 WEEKS EVERY MONTH; ORAL
     Route: 048
     Dates: start: 20060201

REACTIONS (2)
  - CYTOGENETIC ABNORMALITY [None]
  - LUNG INFECTION [None]
